FAERS Safety Report 12800947 (Version 1)
Quarter: 2016Q4

REPORT INFORMATION
  Report Type: Spontaneous
  Country: VE (occurrence: VE)
  Receive Date: 20161002
  Receipt Date: 20161002
  Transmission Date: 20170207
  Serious: Yes (Other)
  Sender: FDA-Public Use
  Company Number: VE-UCBSA-2016015598

PATIENT
  Sex: Male
  Weight: 80 kg

DRUGS (1)
  1. KEPPRA [Suspect]
     Active Substance: LEVETIRACETAM
     Indication: SEIZURE
     Dosage: 100 MG, ONCE DAILY (QD)

REACTIONS (2)
  - Intentional product misuse [Unknown]
  - Seizure [Recovered/Resolved]
